FAERS Safety Report 5938515-7 (Version None)
Quarter: 2008Q4

REPORT INFORMATION
  Report Type: 
  Country: None (occurrence: None)
  Receive Date: 20081103
  Receipt Date: 20081023
  Transmission Date: 20090506
  Serious: Yes (Other)
  Sender: FDA-Public Use
  Company Number: US-JNJFOC-20080905890

PATIENT
  Sex: Female
  Weight: 90.72 kg

DRUGS (15)
  1. REMICADE [Suspect]
     Route: 042
  2. REMICADE [Suspect]
     Route: 042
  3. REMICADE [Suspect]
     Indication: RHEUMATOID ARTHRITIS
     Route: 042
  4. EXTRA STRENGTH TYLENOL [Concomitant]
     Indication: PREMEDICATION
  5. CLARITIN [Concomitant]
     Indication: PREMEDICATION
  6. CELEBREX [Concomitant]
  7. FOLIC ACID [Concomitant]
  8. LAVOXIL [Concomitant]
  9. LORATADINE [Concomitant]
  10. METHOTREXATE [Concomitant]
  11. CLONAZEPAM [Concomitant]
  12. SIMVASTATIN [Concomitant]
  13. NEXIUM [Concomitant]
  14. PREDNISONE [Concomitant]
  15. M.V.I. [Concomitant]

REACTIONS (8)
  - CHEST PAIN [None]
  - DYSPNOEA [None]
  - HEADACHE [None]
  - INFUSION RELATED REACTION [None]
  - NAUSEA [None]
  - PALPITATIONS [None]
  - STAPHYLOCOCCAL INFECTION [None]
  - VOMITING [None]
